FAERS Safety Report 10541518 (Version 2)
Quarter: 2014Q4

REPORT INFORMATION
  Report Type: Report from Study
  Country: US (occurrence: US)
  Receive Date: 20141024
  Receipt Date: 20141024
  Transmission Date: 20150529
  Serious: Yes (Other)
  Sender: FDA-Public Use
  Company Number: PHEH2014US013792

PATIENT
  Age: 64 Year
  Sex: Male

DRUGS (11)
  1. TASIGNA [Suspect]
     Active Substance: NILOTINIB
     Indication: OFF LABEL USE
  2. H3G [Concomitant]
     Indication: PRODUCT USED FOR UNKNOWN INDICATION
     Route: 065
  3. OMEPRAZOLE. [Concomitant]
     Active Substance: OMEPRAZOLE
     Indication: GASTROOESOPHAGEAL REFLUX DISEASE
     Dosage: 40 MG, QD
     Route: 065
     Dates: start: 201211
  4. FAMVIR (FAMCICLOVIR) [Concomitant]
     Indication: ORAL HERPES
     Dosage: 500 MG, QD
     Route: 065
     Dates: start: 201202
  5. TASIGNA [Suspect]
     Active Substance: NILOTINIB
     Indication: GASTROINTESTINAL STROMAL TUMOUR
  6. TASIGNA [Suspect]
     Active Substance: NILOTINIB
     Indication: ACUTE LYMPHOCYTIC LEUKAEMIA
  7. AMBIEN [Concomitant]
     Active Substance: ZOLPIDEM TARTRATE
     Indication: INSOMNIA
     Dosage: 10 MG, PRN
     Route: 065
     Dates: start: 201203
  8. PARA CAF [Concomitant]
     Indication: PAIN
     Dosage: 1 DF, PRN
     Route: 065
     Dates: start: 201204
  9. TASIGNA [Suspect]
     Active Substance: NILOTINIB
     Indication: PLASMA CELL MYELOMA
     Dosage: 400 MG, BID
     Route: 048
     Dates: start: 20140606, end: 20140731
  10. DURAGESIC [Concomitant]
     Active Substance: FENTANYL
     Indication: PAIN
     Dosage: 100 MG, Q12H
     Route: 065
     Dates: start: 201203
  11. TASIGNA [Suspect]
     Active Substance: NILOTINIB
     Indication: BONE NEOPLASM

REACTIONS (2)
  - Palpitations [Recovering/Resolving]
  - Electrocardiogram QT prolonged [Recovering/Resolving]

NARRATIVE: CASE EVENT DATE: 20140718
